FAERS Safety Report 10774682 (Version 1)
Quarter: 2015Q1

REPORT INFORMATION
  Report Type: Report from Study
  Country: US (occurrence: US)
  Receive Date: 20150209
  Receipt Date: 20150209
  Transmission Date: 20150721
  Serious: Yes (Other)
  Sender: FDA-Public Use
  Company Number: US-AMGEN-USASL2015010718

PATIENT
  Age: 54 Year
  Sex: Female

DRUGS (1)
  1. ENBREL [Suspect]
     Active Substance: ETANERCEPT
     Indication: ARTHRITIS
     Dosage: UNK MG, QWK
     Route: 065
     Dates: start: 201410

REACTIONS (3)
  - Ossicle disorder [Not Recovered/Not Resolved]
  - Off label use [Unknown]
  - Deafness [Not Recovered/Not Resolved]
